FAERS Safety Report 12798732 (Version 2)
Quarter: 2016Q4

REPORT INFORMATION
  Report Type: Spontaneous
  Country: JP (occurrence: JP)
  Receive Date: 20160930
  Receipt Date: 20161007
  Transmission Date: 20170207
  Serious: Yes (Death, Other)
  Sender: FDA-Public Use
  Company Number: PHJP2016JP027681

PATIENT
  Age: 62 Year
  Sex: Female

DRUGS (1)
  1. PAZOPANIB [Suspect]
     Active Substance: PAZOPANIB
     Indication: LEIOMYOSARCOMA
     Dosage: UNK
     Route: 048

REACTIONS (9)
  - Death [Fatal]
  - Hepatic function abnormal [Unknown]
  - Multiple organ dysfunction syndrome [Unknown]
  - Concomitant disease aggravated [Unknown]
  - Cardiomegaly [Unknown]
  - Pleural effusion [Unknown]
  - Metabolic acidosis [Unknown]
  - Renal impairment [Unknown]
  - Hyperkalaemia [Unknown]
